FAERS Safety Report 24303448 (Version 1)
Quarter: 2024Q3

REPORT INFORMATION
  Report Type: Spontaneous
  Country: US (occurrence: None)
  Receive Date: 20240909
  Receipt Date: 20240909
  Transmission Date: 20241017
  Serious: Yes (Hospitalization)
  Sender: Public
  Company Number: None

PATIENT
  Age: 78 Year
  Sex: Female
  Weight: 99 kg

DRUGS (8)
  1. TERIPARATIDE [Suspect]
     Active Substance: TERIPARATIDE
     Indication: Osteoporosis
     Dosage: FREQUENCY : DAILY;?
     Route: 058
     Dates: start: 20230329
  2. OXYCONTIN [Concomitant]
     Active Substance: OXYCODONE HYDROCHLORIDE
  3. FLUOXETINE [Concomitant]
     Active Substance: FLUOXETINE HYDROCHLORIDE
  4. FOSINOPRIL [Concomitant]
     Active Substance: FOSINOPRIL
  5. LOVASTATIN [Concomitant]
     Active Substance: LOVASTATIN
  6. OMEPRAZOLE [Concomitant]
     Active Substance: OMEPRAZOLE
  7. TIZANIDINE [Concomitant]
     Active Substance: TIZANIDINE
  8. TRAMADOL [Concomitant]
     Active Substance: TRAMADOL\TRAMADOL HYDROCHLORIDE

REACTIONS (2)
  - Constipation [None]
  - Therapy interrupted [None]

NARRATIVE: CASE EVENT DATE: 20240902
